FAERS Safety Report 6543698-4 (Version None)
Quarter: 2010Q1

REPORT INFORMATION
  Report Type: 
  Country: None (occurrence: None)
  Receive Date: 20100120
  Receipt Date: 20100111
  Transmission Date: 20100710
  Serious: Yes (Death)
  Sender: FDA-Public Use
  Company Number: FR-EISAI INC.-E7867-00088-SPO-FR

PATIENT
  Age: 57 Year
  Sex: Male

DRUGS (4)
  1. GLIADEL [Suspect]
     Indication: GLIOBLASTOMA
     Dosage: UNKNOWN
     Route: 018
  2. METHYLPREDNISOLONE [Concomitant]
     Route: 048
  3. METHYLPREDNISOLONE [Concomitant]
     Route: 030
  4. CEFAZOLIN [Concomitant]
     Route: 065

REACTIONS (1)
  - CLOSTRIDIAL INFECTION [None]
